FAERS Safety Report 8915904 (Version 1)
Quarter: 2012Q4

REPORT INFORMATION
  Report Type: 
  Country: SE (occurrence: SE)
  Receive Date: 20121119
  Receipt Date: 20121119
  Transmission Date: 20130627
  Serious: Yes (Hospitalization)
  Sender: FDA-Public Use
  Company Number: SE-PFIZER INC-2012286230

PATIENT
  Age: 76 Year
  Sex: Male
  Weight: 77 kg

DRUGS (5)
  1. GENOTROPIN [Suspect]
     Dosage: UNK
  2. TESTOSTERONE [Concomitant]
     Indication: LUTEINISING HORMONE DEFICIENCY
     Dosage: UNK
     Dates: start: 20090210
  3. TESTOSTERONE [Concomitant]
     Indication: FOLLICLE-STIMULATING HORMONE DEFICIENCY
  4. TESTOSTERONE [Concomitant]
     Indication: TESTICULAR HYPOGONADISM
  5. CRESTOR [Concomitant]
     Dosage: UNK
     Dates: start: 20100202

REACTIONS (1)
  - Cardiac disorder [Unknown]
